FAERS Safety Report 10928937 (Version 1)
Quarter: 2015Q1

REPORT INFORMATION
  Report Type: Spontaneous
  Country: US (occurrence: None)
  Receive Date: 20150317
  Receipt Date: 20150317
  Transmission Date: 20150721
  Serious: Yes (Life-Threatening)
  Sender: FDA-Public Use
  Company Number: None

PATIENT
  Age: 33 Year
  Sex: Male
  Weight: 76.36 kg

DRUGS (5)
  1. MERCAPTOPURINE. [Suspect]
     Active Substance: MERCAPTOPURINE
     Dates: end: 20150302
  2. CYCLOPHOSPHAMIDE. [Suspect]
     Active Substance: CYCLOPHOSPHAMIDE
     Dates: end: 20150217
  3. METHOTREXATE [Concomitant]
     Active Substance: METHOTREXATE
     Dates: end: 20150224
  4. ASPARAGINASE [Suspect]
     Active Substance: ASPARAGINASE
     Dates: end: 20150303
  5. CYTARABINE. [Suspect]
     Active Substance: CYTARABINE
     Dates: end: 20150227

REACTIONS (9)
  - Syncope [None]
  - Muscular weakness [None]
  - Heart rate increased [None]
  - Thrombocytopenia [None]
  - Malaise [None]
  - Blood pressure orthostatic [None]
  - Fatigue [None]
  - Fluid intake reduced [None]
  - Hypotension [None]

NARRATIVE: CASE EVENT DATE: 20150310
